FAERS Safety Report 7482622-7 (Version None)
Quarter: 2011Q2

REPORT INFORMATION
  Report Type: 
  Country: None (occurrence: None)
  Receive Date: 20110516
  Receipt Date: 20110506
  Transmission Date: 20111010
  Serious: Yes (Hospitalization)
  Sender: FDA-Public Use
  Company Number: PHHY2011US39278

PATIENT
  Sex: Male

DRUGS (1)
  1. EXJADE [Suspect]
     Indication: NEOPLASM
     Dosage: 1375 MG, QD
     Route: 048
     Dates: start: 20110209

REACTIONS (1)
  - STAPHYLOCOCCAL INFECTION [None]
